FAERS Safety Report 20730129 (Version 3)
Quarter: 2022Q2

REPORT INFORMATION
  Report Type: Spontaneous
  Country: US (occurrence: US)
  Receive Date: 20220420
  Receipt Date: 20220609
  Transmission Date: 20220721
  Serious: No
  Sender: FDA-Public Use
  Company Number: US-PFIZER INC-202101639681

PATIENT
  Age: 63 Year
  Sex: Male
  Weight: 101.6 kg

DRUGS (1)
  1. GENOTROPIN [Suspect]
     Active Substance: SOMATROPIN
     Dosage: 5 MG, DAILY (2 MG AT AM, 2 MG AT NOON, AND 1 MG AT PM)
     Dates: start: 1994

REACTIONS (3)
  - Asthenia [Unknown]
  - Drug dose omission by device [Unknown]
  - Device malfunction [Unknown]
